FAERS Safety Report 8890157 (Version 1)
Quarter: 2012Q4

REPORT INFORMATION
  Report Type: Spontaneous
  Country: FR (occurrence: None)
  Receive Date: 20121031
  Receipt Date: 20121031
  Transmission Date: 20130627
  Serious: Yes (Hospitalization, Disabling)
  Sender: FDA-Public Use
  Company Number: FR 2008 0109

PATIENT
  Age: 54 Year
  Sex: Male

DRUGS (9)
  1. LIPIODOL (ETHIODIZED OIL) (ETHIODIZED OIL) [Suspect]
     Indication: CHEMOEMBOLIZATION
     Dosage: (20 ML, 1 IN 1 TOTAL)
     Route: 013
     Dates: start: 20080718, end: 20080718
  2. DOXORUBICIN (DOXORUBICN) [Suspect]
     Indication: CHEMOEMBOLIZATION
     Route: 013
     Dates: start: 20080718, end: 20080718
  3. ULTIVA (REMIFENTANYL)  (REMIFENTANYL) [Concomitant]
  4. PROPOFOL (PROPOFOL) (PROPOFOL) [Concomitant]
  5. OXYGEN (OXYGEN) (OXYGEN) [Concomitant]
  6. PERFALGAN (PARACETAMOL)(PARACETAMOL) [Concomitant]
  7. ACUPAN (NEFOPAM) (NEFOPAM) [Concomitant]
  8. PROFENID (KETOPROFEN)(KETOPROFEN) [Concomitant]
  9. ... [Concomitant]

REACTIONS (4)
  - Paraplegia [None]
  - Cauda equina syndrome [None]
  - Neurogenic bladder [None]
  - Off label use [None]
